FAERS Safety Report 11073348 (Version 1)
Quarter: 2015Q2

REPORT INFORMATION
  Report Type: Report from Study
  Country: US (occurrence: US)
  Receive Date: 20150428
  Receipt Date: 20150428
  Transmission Date: 20150821
  Serious: Yes (Life-Threatening, Hospitalization, Disabling, Other)
  Sender: FDA-Public Use
  Company Number: US-TAKEDA-2014MPI001729

PATIENT
  Age: 65 Year
  Sex: Male
  Weight: 73.8 kg

DRUGS (18)
  1. DEXAMETHASONE. [Suspect]
     Active Substance: DEXAMETHASONE
     Indication: PLASMA CELL MYELOMA
     Dosage: UNK
     Route: 065
     Dates: start: 20130408, end: 20130712
  2. ZOFRAN [Concomitant]
     Active Substance: ONDANSETRON HYDROCHLORIDE
  3. PEN-VEE-K [Concomitant]
     Active Substance: PENICILLIN V POTASSIUM
     Dosage: UNK
     Route: 065
  4. ACYCLOVIR                          /00587301/ [Concomitant]
     Active Substance: ACYCLOVIR
  5. BACTRIM [Concomitant]
     Active Substance: SULFAMETHOXAZOLE\TRIMETHOPRIM
  6. CIPRO                              /00697203/ [Concomitant]
     Dosage: UNK
     Route: 065
  7. COMPAZINE [Concomitant]
     Active Substance: PROCHLORPERAZINE MALEATE
  8. EMEND [Concomitant]
     Active Substance: APREPITANT
     Dosage: UNK
     Route: 065
  9. NORCO [Concomitant]
     Active Substance: ACETAMINOPHEN\HYDROCODONE BITARTRATE
     Dosage: UNK
     Route: 065
  10. LENALIDOMIDE [Suspect]
     Active Substance: LENALIDOMIDE
     Indication: PLASMA CELL MYELOMA
     Dosage: UNK
     Route: 065
     Dates: start: 20130408, end: 20130712
  11. PROTONIX [Concomitant]
     Active Substance: PANTOPRAZOLE SODIUM
  12. DIFLUCAN [Concomitant]
     Active Substance: FLUCONAZOLE
  13. POTASSIUM [Concomitant]
     Active Substance: POTASSIUM
     Route: 042
  14. SANCUSO [Concomitant]
     Active Substance: GRANISETRON
     Dosage: UNK
     Route: 062
  15. MELPHALAN [Suspect]
     Active Substance: MELPHALAN
     Indication: HAEMATOPOIETIC STEM CELL MOBILISATION
     Dosage: 200 MG/M2, UNK
     Route: 042
     Dates: start: 20130812
  16. MAGNESIUM [Concomitant]
     Active Substance: MAGNESIUM
     Route: 042
  17. VELCADE [Suspect]
     Active Substance: BORTEZOMIB
     Indication: PLASMA CELL MYELOMA
     Dosage: UNK
     Route: 065
     Dates: start: 20130408, end: 20130712
  18. NEULASTA [Concomitant]
     Active Substance: PEGFILGRASTIM

REACTIONS (15)
  - Deep vein thrombosis [Recovered/Resolved]
  - Pyrexia [Recovered/Resolved]
  - Feeling hot [Recovered/Resolved]
  - Engraftment syndrome [Recovered/Resolved]
  - Infection [Recovered/Resolved]
  - Pneumonia [Unknown]
  - Atelectasis [Recovered/Resolved]
  - Drug ineffective [Unknown]
  - Rash maculo-papular [Recovered/Resolved]
  - Lung infection [Recovered/Resolved]
  - Pruritus [Recovered/Resolved]
  - Chills [Recovered/Resolved]
  - Rash papular [Recovered/Resolved]
  - Dermatitis contact [Recovered/Resolved]
  - Rash [Recovered/Resolved]

NARRATIVE: CASE EVENT DATE: 201305
